FAERS Safety Report 8982171 (Version 1)
Quarter: 2012Q4

REPORT INFORMATION
  Report Type: 
  Country: US (occurrence: US)
  Receive Date: 20121212
  Receipt Date: 20121212
  Transmission Date: 20130627
  Serious: Yes (Hospitalization, Other)
  Sender: FDA-Public Use
  Company Number: US-ASTELLAS-1117229

PATIENT
  Sex: Male

DRUGS (2)
  1. TARCEVA [Suspect]
     Indication: MALIGNANT RESPIRATORY TRACT NEOPLASM
     Route: 048
     Dates: start: 20071004, end: 20080320
  2. TARCEVA [Suspect]
     Indication: LUNG CANCER METASTATIC
     Route: 048

REACTIONS (2)
  - Pneumothorax [Unknown]
  - Pneumothorax [Unknown]
